FAERS Safety Report 9937128 (Version 1)
Quarter: 2014Q1

REPORT INFORMATION
  Report Type: Report from Study
  Country: US (occurrence: US)
  Receive Date: 20140301
  Receipt Date: 20140301
  Transmission Date: 20141002
  Serious: Yes (Other)
  Sender: FDA-Public Use
  Company Number: US-ROCHE-1340312

PATIENT
  Sex: Female

DRUGS (8)
  1. LUCENTIS [Suspect]
     Indication: PRESUMED OCULAR HISTOPLASMOSIS SYNDROME
     Dosage: OD
     Route: 050
  2. LUCENTIS [Suspect]
     Indication: AGE-RELATED MACULAR DEGENERATION
  3. LUCENTIS [Suspect]
     Indication: VITREOUS DETACHMENT
  4. AVASTIN [Suspect]
     Indication: PRESUMED OCULAR HISTOPLASMOSIS SYNDROME
     Route: 050
     Dates: start: 200902
  5. AVASTIN [Suspect]
     Indication: VITREOUS DETACHMENT
  6. AVASTIN [Suspect]
     Indication: AGE-RELATED MACULAR DEGENERATION
  7. ZYMAXID [Concomitant]
     Route: 065
  8. OFLOXACIN [Concomitant]
     Route: 065

REACTIONS (6)
  - Cystoid macular oedema [Unknown]
  - Visual acuity reduced [Unknown]
  - Off label use [Unknown]
  - Drug ineffective [Unknown]
  - Off label use [Unknown]
  - Cataract [Unknown]
